FAERS Safety Report 19621122 (Version 1)
Quarter: 2021Q3

REPORT INFORMATION
  Report Type: Spontaneous
  Country: US (occurrence: US)
  Receive Date: 20210727
  Receipt Date: 20210727
  Transmission Date: 20211014
  Serious: Yes (Hospitalization)
  Sender: FDA-Public Use
  Company Number: None

PATIENT
  Sex: Female

DRUGS (7)
  1. MYCOPHENOLIC [Concomitant]
     Active Substance: MYCOPHENOLIC ACID
  2. PANTOPRAZOLE [Concomitant]
     Active Substance: PANTOPRAZOLE
  3. PREDNISONE. [Concomitant]
     Active Substance: PREDNISONE
  4. TACROLIMUS 1MG CAP [Suspect]
     Active Substance: TACROLIMUS
     Indication: IMMUNODEFICIENCY
     Route: 048
     Dates: start: 20210630
  5. PROGRAF [Concomitant]
     Active Substance: TACROLIMUS
  6. HYDROXYCHLOR [Concomitant]
     Active Substance: HYDROXYCHLOROQUINE
  7. MYFORTIC [Concomitant]
     Active Substance: MYCOPHENOLATE SODIUM

REACTIONS (1)
  - Nausea [None]
